FAERS Safety Report 10081677 (Version 1)
Quarter: 2014Q2

REPORT INFORMATION
  Report Type: Spontaneous
  Country: US (occurrence: None)
  Receive Date: 20140407
  Receipt Date: 20140407
  Transmission Date: 20141212
  Serious: Yes (Disabling)
  Sender: FDA-Public Use
  Company Number: 2014SA032221

PATIENT
  Age: 67 Year
  Sex: Male

DRUGS (2)
  1. LANTUS SOLOSTAR [Suspect]
     Indication: TYPE 2 DIABETES MELLITUS
     Dosage: 80 UNIT(S) ; TWICE A DAY; SUBCUTANEOUS
  2. SOLOSTAR [Concomitant]

REACTIONS (2)
  - Visual impairment [None]
  - Needle issue [None]
